FAERS Safety Report 6806690-8 (Version None)
Quarter: 2010Q2

REPORT INFORMATION
  Report Type: 
  Country: None (occurrence: None)
  Receive Date: 20100629
  Receipt Date: 20080609
  Transmission Date: 20101027
  Serious: No
  Sender: FDA-Public Use
  Company Number: US-PFIZER INC-2008034784

PATIENT
  Sex: Male
  Weight: 79.5 kg

DRUGS (6)
  1. VIAGRA [Suspect]
     Indication: ERECTILE DYSFUNCTION
     Route: 048
  2. ACETYLSALICYLIC ACID [Concomitant]
  3. METOPROLOL [Concomitant]
  4. SIMVASTATIN [Concomitant]
  5. LISINOPRIL [Concomitant]
  6. CHONDROITIN/GLUCOSAMINE [Concomitant]

REACTIONS (2)
  - DRUG INEFFECTIVE [None]
  - FLUSHING [None]
